FAERS Safety Report 6372629-5 (Version None)
Quarter: 2009Q3

REPORT INFORMATION
  Report Type: 
  Country: None (occurrence: None)
  Receive Date: 20090924
  Receipt Date: 20090410
  Transmission Date: 20100115
  Serious: Yes (Other)
  Sender: FDA-Public Use
  Company Number: US-ASTRAZENECA-2008UW27426

PATIENT
  Sex: Female
  Weight: 59.9 kg

DRUGS (1)
  1. SEROQUEL [Suspect]
     Indication: MENTAL DISORDER
     Dosage: 200-400 MG
     Route: 048
     Dates: start: 20060101, end: 20080101

REACTIONS (2)
  - DIABETES MELLITUS [None]
  - DIABETIC COMA [None]
